FAERS Safety Report 4751506-7 (Version None)
Quarter: 2005Q3

REPORT INFORMATION
  Report Type: 
  Country: None (occurrence: None)
  Receive Date: 20050824
  Receipt Date: 20050809
  Transmission Date: 20060218
  Serious: Yes (Other)
  Sender: FDA-Public Use
  Company Number: 200512343EU

PATIENT
  Sex: Male

DRUGS (2)
  1. NICORETTE [Suspect]
     Route: 002
     Dates: start: 20050501, end: 20050601
  2. ETHANOL [Suspect]
     Route: 048

REACTIONS (2)
  - LIVER FUNCTION TEST ABNORMAL [None]
  - MALAISE [None]
